FAERS Safety Report 17950326 (Version 1)
Quarter: 2020Q2

REPORT INFORMATION
  Report Type: Spontaneous
  Country: US (occurrence: US)
  Receive Date: 20200626
  Receipt Date: 20200626
  Transmission Date: 20200714
  Serious: Yes (Other)
  Sender: FDA-Public Use
  Company Number: None

PATIENT
  Age: 75 Year
  Sex: Female
  Weight: 74.8 kg

DRUGS (1)
  1. REMDESIVIR. [Suspect]
     Active Substance: REMDESIVIR
     Indication: COVID-19
     Route: 040
     Dates: start: 20200622, end: 20200625

REACTIONS (1)
  - Blood creatinine increased [None]

NARRATIVE: CASE EVENT DATE: 20200626
